FAERS Safety Report 15325649 (Version 7)
Quarter: 2019Q3

REPORT INFORMATION
  Report Type: Spontaneous
  Country: IE (occurrence: IE)
  Receive Date: 20180828
  Receipt Date: 20190808
  Transmission Date: 20191004
  Serious: Yes (Hospitalization, Other)
  Sender: FDA-Public Use
  Company Number: IE-CLOVIS ONCOLOGY-CLO-2018-000963

PATIENT

DRUGS (31)
  1. RUBRACA [Suspect]
     Active Substance: RUCAPARIB CAMSYLATE
     Dosage: 500 MG, BID
     Route: 048
     Dates: start: 20180821, end: 20180831
  2. METOPROLOL. [Concomitant]
     Active Substance: METOPROLOL
     Dosage: 100 MG, TID
     Route: 048
  3. LANZOPRAZOL [Concomitant]
     Active Substance: LANSOPRAZOLE
     Indication: DYSPEPSIA
  4. CALCICHEW D3 [Concomitant]
     Active Substance: CALCIUM\CHOLECALCIFEROL
     Indication: OSTEOPOROSIS PROPHYLAXIS
     Dosage: 1000/500
     Route: 048
  5. TINZAPARIN [Concomitant]
     Active Substance: TINZAPARIN
     Indication: ATRIAL FIBRILLATION
     Dosage: 12000 IU, QD
     Route: 058
  6. RUBRACA [Suspect]
     Active Substance: RUCAPARIB CAMSYLATE
     Dosage: 500 MG, BID
     Dates: start: 20180803, end: 20180813
  7. METOPROLOL. [Concomitant]
     Active Substance: METOPROLOL
     Indication: ATRIAL FIBRILLATION
     Dosage: 50 MG, TID
     Route: 048
  8. METFORMIN [Concomitant]
     Active Substance: METFORMIN HYDROCHLORIDE
     Indication: DIABETES MELLITUS
     Dosage: 500 MG, BID
     Route: 048
     Dates: start: 20180822
  9. RAMIPRIL. [Concomitant]
     Active Substance: RAMIPRIL
     Indication: CARDIAC FAILURE CONGESTIVE
     Dosage: 2.5 MG, QD
     Route: 048
     Dates: start: 20180816
  10. RUBRACA [Suspect]
     Active Substance: RUCAPARIB CAMSYLATE
     Dosage: UNK
     Dates: start: 20190525, end: 20190712
  11. ASPIRIN                            /00002701/ [Concomitant]
     Active Substance: ASPIRIN
     Indication: CARDIOVASCULAR EVENT PROPHYLAXIS
     Dosage: 75 MG, QD
     Route: 048
  12. RUBRACA [Suspect]
     Active Substance: RUCAPARIB CAMSYLATE
     Dosage: 400 MG, BID
     Route: 048
     Dates: start: 20180919, end: 20180926
  13. FUROSEMIDE. [Concomitant]
     Active Substance: FUROSEMIDE
     Indication: EJECTION FRACTION
     Dosage: 40 MG, QD
     Route: 048
     Dates: end: 20180721
  14. DIGOXIN. [Concomitant]
     Active Substance: DIGOXIN
     Indication: ATRIAL FIBRILLATION
     Dosage: 125 ?G, QD
     Route: 048
  15. BUMETANIDE. [Concomitant]
     Active Substance: BUMETANIDE
     Indication: CARDIAC FAILURE CONGESTIVE
     Dosage: 1 MG, QD
     Route: 048
     Dates: start: 20180816
  16. ZOLPIDEM [Concomitant]
     Active Substance: ZOLPIDEM TARTRATE
     Indication: PRODUCT USED FOR UNKNOWN INDICATION
     Dosage: 5 MG, Q HS
  17. AMLODIPINE [Concomitant]
     Active Substance: AMLODIPINE BESYLATE
     Indication: BLOOD PRESSURE INCREASED
     Dosage: 5 MG, QD
     Route: 048
  18. RUBRACA [Suspect]
     Active Substance: RUCAPARIB CAMSYLATE
     Dosage: UNK
     Dates: start: 20190517, end: 20190524
  19. DIGOXIN. [Concomitant]
     Active Substance: DIGOXIN
     Dosage: 62.5 ?G, QD
     Route: 048
  20. JANUMET [Concomitant]
     Active Substance: METFORMIN HYDROCHLORIDE\SITAGLIPTIN PHOSPHATE
     Indication: DIABETES MELLITUS
     Dosage: 1000/50, BID
     Route: 048
  21. LANZOPRAZOL [Concomitant]
     Active Substance: LANSOPRAZOLE
     Indication: PRODUCT USED FOR UNKNOWN INDICATION
     Dosage: 30 MG, QD
     Route: 048
  22. ATORVASTATIN [Concomitant]
     Active Substance: ATORVASTATIN
     Indication: BLOOD CHOLESTEROL INCREASED
     Dosage: 40 MG, QD
     Route: 048
     Dates: end: 20180720
  23. RAMIPRIL. [Concomitant]
     Active Substance: RAMIPRIL
     Dosage: 1.25 MG, QD
     Route: 048
  24. CYCLIZINE [Concomitant]
     Active Substance: CYCLIZINE
     Indication: PRODUCT USED FOR UNKNOWN INDICATION
     Dosage: 50 MG, TID, PRN
  25. GLICLAZIDE MR [Concomitant]
     Active Substance: GLICLAZIDE
     Indication: DIABETES MELLITUS
     Dosage: 60 MG, QD
     Route: 048
     Dates: start: 20180820
  26. RUBRACA [Suspect]
     Active Substance: RUCAPARIB CAMSYLATE
     Indication: OVARIAN CANCER
     Dosage: 600 MG, BID
     Dates: start: 20180716, end: 20180720
  27. ASPIRIN                            /00002701/ [Concomitant]
     Active Substance: ASPIRIN
     Indication: DIABETES MELLITUS
  28. FUROSEMIDE. [Concomitant]
     Active Substance: FUROSEMIDE
     Indication: CARDIAC FAILURE CONGESTIVE
  29. CALCICHEW D3 [Concomitant]
     Active Substance: CALCIUM\CHOLECALCIFEROL
     Indication: HYPOCALCAEMIA
  30. SITAGLIPTIN [Concomitant]
     Active Substance: SITAGLIPTIN
     Indication: DIABETES MELLITUS
     Dosage: UNK
     Dates: end: 2018
  31. LINAGLIPTIN [Concomitant]
     Active Substance: LINAGLIPTIN
     Indication: DIABETES MELLITUS
     Dosage: 5 MG, QD
     Route: 048
     Dates: start: 20180820

REACTIONS (14)
  - Blood creatinine increased [Recovered/Resolved]
  - Flank pain [Recovered/Resolved]
  - Cystitis noninfective [Recovered/Resolved]
  - Decreased appetite [Recovered/Resolved]
  - Blood creatinine increased [Recovered/Resolved]
  - Atrial fibrillation [Recovered/Resolved]
  - Blood creatinine increased [Recovered/Resolved]
  - Toxicity to various agents [Unknown]
  - Carbohydrate antigen 125 increased [Recovering/Resolving]
  - Blood creatinine increased [Recovered/Resolved]
  - Diabetes mellitus inadequate control [Recovered/Resolved]
  - Pulmonary oedema [Recovered/Resolved]
  - Blood creatinine increased [Recovered/Resolved]
  - Blood creatinine increased [Recovered/Resolved]

NARRATIVE: CASE EVENT DATE: 2018
